FAERS Safety Report 10200297 (Version 2)
Quarter: 2014Q2

REPORT INFORMATION
  Report Type: Report from Study
  Country: DE (occurrence: DE)
  Receive Date: 20140527
  Receipt Date: 20140527
  Transmission Date: 20141212
  Serious: Yes (Hospitalization)
  Sender: FDA-Public Use
  Company Number: US-ASTRAZENECA-2014SE36166

PATIENT
  Age: 10 Month
  Sex: Male
  Weight: 8.6 kg

DRUGS (18)
  1. PALIVIZUMAB [Suspect]
     Indication: HYPOPLASTIC RIGHT HEART SYNDROME
     Route: 030
     Dates: start: 20130926, end: 20130926
  2. PALIVIZUMAB [Suspect]
     Indication: PREMATURE BABY
     Route: 030
     Dates: start: 20130926, end: 20130926
  3. PALIVIZUMAB [Suspect]
     Indication: HYPOPLASTIC RIGHT HEART SYNDROME
     Route: 030
     Dates: start: 20131023, end: 20131023
  4. PALIVIZUMAB [Suspect]
     Indication: PREMATURE BABY
     Route: 030
     Dates: start: 20131023, end: 20131023
  5. PALIVIZUMAB [Suspect]
     Indication: HYPOPLASTIC RIGHT HEART SYNDROME
     Route: 030
     Dates: start: 20131114, end: 20131114
  6. PALIVIZUMAB [Suspect]
     Indication: PREMATURE BABY
     Route: 030
     Dates: start: 20131114, end: 20131114
  7. PALIVIZUMAB [Suspect]
     Indication: HYPOPLASTIC RIGHT HEART SYNDROME
     Route: 030
     Dates: start: 20140109, end: 20140109
  8. PALIVIZUMAB [Suspect]
     Indication: PREMATURE BABY
     Route: 030
     Dates: start: 20140109, end: 20140109
  9. PALIVIZUMAB [Suspect]
     Indication: HYPOPLASTIC RIGHT HEART SYNDROME
     Route: 030
     Dates: start: 20140212, end: 20140212
  10. PALIVIZUMAB [Suspect]
     Indication: PREMATURE BABY
     Route: 030
     Dates: start: 20140212, end: 20140212
  11. PALIVIZUMAB [Suspect]
     Indication: HYPOPLASTIC RIGHT HEART SYNDROME
     Route: 030
     Dates: start: 20140311, end: 20140311
  12. PALIVIZUMAB [Suspect]
     Indication: PREMATURE BABY
     Route: 030
     Dates: start: 20140311, end: 20140311
  13. PALIVIZUMAB [Suspect]
     Indication: HYPOPLASTIC RIGHT HEART SYNDROME
     Route: 030
     Dates: start: 20140409, end: 20140409
  14. PALIVIZUMAB [Suspect]
     Indication: PREMATURE BABY
     Route: 030
     Dates: start: 20140409, end: 20140409
  15. DIGOXIN [Concomitant]
     Indication: PRODUCT USED FOR UNKNOWN INDICATION
     Route: 048
  16. ASA [Concomitant]
     Indication: PRODUCT USED FOR UNKNOWN INDICATION
     Route: 048
  17. CAPTOPRIL [Concomitant]
     Indication: PRODUCT USED FOR UNKNOWN INDICATION
     Route: 048
  18. MONTELUKAST [Concomitant]
     Indication: PRODUCT USED FOR UNKNOWN INDICATION
     Route: 048

REACTIONS (2)
  - Febrile infection [Recovered/Resolved]
  - Bronchopneumonia [Recovered/Resolved]
